FAERS Safety Report 4548790-1 (Version None)
Quarter: 2005Q1

REPORT INFORMATION
  Report Type: 
  Country: None (occurrence: None)
  Receive Date: 20050107
  Receipt Date: 20050107
  Transmission Date: 20050727
  Serious: Yes (Hospitalization)
  Sender: FDA-Public Use
  Company Number: None

PATIENT
  Age: 79 Year
  Sex: Male
  Weight: 65.318 kg

DRUGS (1)
  1. CHLORPROMAZINE [Suspect]
     Indication: HICCUPS
     Dosage: 25 MG TID ORAL
     Route: 048
     Dates: start: 20041204, end: 20041204

REACTIONS (3)
  - BLOOD PRESSURE DECREASED [None]
  - DEPRESSED LEVEL OF CONSCIOUSNESS [None]
  - NEUROLEPTIC MALIGNANT SYNDROME [None]
